FAERS Safety Report 24004033 (Version 1)
Quarter: 2024Q2

REPORT INFORMATION
  Report Type: Spontaneous
  Country: HU (occurrence: HU)
  Receive Date: 20240624
  Receipt Date: 20240624
  Transmission Date: 20240716
  Serious: Yes (Hospitalization, Other)
  Sender: FDA-Public Use
  Company Number: HU-SA-SAC20240619000130

PATIENT
  Sex: Male
  Weight: 89 kg

DRUGS (6)
  1. CERDELGA [Suspect]
     Active Substance: ELIGLUSTAT
     Indication: Gaucher^s disease
     Dosage: UNK
     Route: 065
     Dates: start: 20220406
  2. OLMESARTAN MEDOXOMIL [Suspect]
     Active Substance: OLMESARTAN MEDOXOMIL
     Indication: Hypertension
     Dosage: 20 MG, QD
     Route: 048
  3. ALLOPURINOL [Suspect]
     Active Substance: ALLOPURINOL
     Indication: Hyperuricaemia
     Dosage: 300 MG, QD
     Route: 048
  4. INDAPAMIDE [Suspect]
     Active Substance: INDAPAMIDE
     Indication: Hypertension
     Dosage: 1.5 MG, QD
     Route: 048
  5. CITICOLINE [Suspect]
     Active Substance: CITICOLINE
     Indication: Chronic gastritis
     Dosage: 30 MG, QD
     Route: 048
  6. RILMENIDINE [Suspect]
     Active Substance: RILMENIDINE
     Indication: Hypertension
     Dosage: 1 MG, QD
     Route: 048

REACTIONS (4)
  - Renal cell carcinoma [Recovering/Resolving]
  - Bone pain [Unknown]
  - Impaired quality of life [Unknown]
  - Fatigue [Unknown]
